FAERS Safety Report 9280922 (Version 1)
Quarter: 2013Q2

REPORT INFORMATION
  Report Type: Spontaneous
  Country: US (occurrence: None)
  Receive Date: 20130508
  Receipt Date: 20130508
  Transmission Date: 20140414
  Serious: Yes (Other)
  Sender: FDA-Public Use
  Company Number: None

PATIENT
  Age: 48 Year
  Sex: Female
  Weight: 49.9 kg

DRUGS (2)
  1. OXYCODONE [Suspect]
     Indication: SPINAL COLUMN STENOSIS
     Dosage: ONE TABLET, EVERY 4HR; MDD 5, PO
     Route: 048
     Dates: start: 20130418, end: 20130506
  2. OXYCODONE [Suspect]
     Indication: INTERVERTEBRAL DISC PROTRUSION
     Dosage: ONE TABLET, EVERY 4HR; MDD 5, PO
     Route: 048
     Dates: start: 20130418, end: 20130506

REACTIONS (5)
  - Headache [None]
  - Pain [None]
  - Product substitution issue [None]
  - Product quality issue [None]
  - Drug ineffective [None]
